FAERS Safety Report 7816922-5 (Version None)
Quarter: 2011Q4

REPORT INFORMATION
  Report Type: 
  Country: None (occurrence: None)
  Receive Date: 20111017
  Receipt Date: 20111003
  Transmission Date: 20120403
  Serious: Yes (Other)
  Sender: FDA-Public Use
  Company Number: US-ELI_LILLY_AND_COMPANY-US201108007761

PATIENT
  Sex: Female

DRUGS (1)
  1. FORTEO [Suspect]
     Dosage: UNK
     Route: 065

REACTIONS (7)
  - MEMORY IMPAIRMENT [None]
  - FATIGUE [None]
  - SYNCOPE [None]
  - ASTHENIA [None]
  - WEIGHT DECREASED [None]
  - MALAISE [None]
  - VOMITING [None]
